FAERS Safety Report 11615030 (Version 1)
Quarter: 2015Q4

REPORT INFORMATION
  Report Type: Spontaneous
  Country: PH (occurrence: PH)
  Receive Date: 20151009
  Receipt Date: 20151009
  Transmission Date: 20160304
  Serious: Yes (Other)
  Sender: FDA-Public Use
  Company Number: PH-009507513-1510PHL002401

PATIENT
  Age: 64 Year
  Sex: Female

DRUGS (2)
  1. JANUVIA [Suspect]
     Active Substance: SITAGLIPTIN PHOSPHATE
     Indication: DIABETES MELLITUS
     Dosage: 100 MG,QD
     Route: 048
     Dates: start: 2013, end: 201505
  2. DIAMICRON MR [Concomitant]
     Active Substance: GLICLAZIDE
     Dosage: 60 MG, QD, BEFORE BREAKFAST

REACTIONS (2)
  - Breast cancer stage III [Unknown]
  - Spinal laminectomy [Unknown]

NARRATIVE: CASE EVENT DATE: 2014
